FAERS Safety Report 7514605-2 (Version None)
Quarter: 2011Q2

REPORT INFORMATION
  Report Type: 
  Country: None (occurrence: None)
  Receive Date: 20110520
  Receipt Date: 20110509
  Transmission Date: 20111010
  Serious: Yes (Death)
  Sender: FDA-Public Use
  Company Number: KV201000315

PATIENT
  Age: 44 Year
  Sex: Male

DRUGS (11)
  1. FENTANYL [Concomitant]
  2. ADVAIR (FLUTICASONE PROPINOATE, SALMETEROL XINAFOATE) [Concomitant]
  3. LORAZEPAM [Concomitant]
  4. FAMOTIDINE [Concomitant]
  5. DOXYCYCLINE [Concomitant]
  6. ONDANSETRON [Concomitant]
  7. MORPHINE SULFATE [Suspect]
     Indication: PAIN
     Dosage: ORAL
     Route: 048
     Dates: start: 20080909, end: 20080923
  8. CHEMOTHERAPEUTICS NOS [Concomitant]
  9. ALBUTEROL [Concomitant]
  10. XANAX [Concomitant]
  11. HYDROCODONE BITARTRATE AND ACETAMINOPHEN (HYDROCODONE BITARTRATE, PARA [Concomitant]

REACTIONS (8)
  - OVERDOSE [None]
  - PRODUCT MEASURED POTENCY ISSUE [None]
  - ENDOTRACHEAL INTUBATION COMPLICATION [None]
  - TESTICULAR CANCER METASTATIC [None]
  - UNRESPONSIVE TO STIMULI [None]
  - SWOLLEN TONGUE [None]
  - PRODUCT SIZE ISSUE [None]
  - CARDIO-RESPIRATORY ARREST [None]
